FAERS Safety Report 8990393 (Version 1)
Quarter: 2012Q4

REPORT INFORMATION
  Report Type: Report from Study
  Country: US (occurrence: US)
  Receive Date: 20121228
  Receipt Date: 20121228
  Transmission Date: 20130627
  Serious: Yes (Hospitalization)
  Sender: FDA-Public Use
  Company Number: US-ABBOTT-12P-163-1025583-00

PATIENT
  Age: 77 None
  Sex: Female
  Weight: 77.18 kg

DRUGS (8)
  1. HUMIRA [Suspect]
     Indication: PSORIASIS
  2. VITAMIN D [Concomitant]
     Indication: PRODUCT USED FOR UNKNOWN INDICATION
  3. HYDROCODONE [Concomitant]
     Indication: PAIN
  4. HYDROCHLOROTHIAZIDE [Concomitant]
     Indication: DIURETIC THERAPY
  5. FENOFIBRATE [Concomitant]
     Indication: BLOOD CHOLESTEROL
  6. DILTIAZEM [Concomitant]
     Indication: BLOOD PRESSURE
  7. FUROSEMIDE [Concomitant]
     Indication: DIURETIC THERAPY
  8. JANUVIA [Concomitant]
     Indication: DIABETES MELLITUS

REACTIONS (9)
  - Cough [Recovered/Resolved]
  - Thrombosis [Recovered/Resolved]
  - Fall [Recovered/Resolved]
  - Rib fracture [Recovered/Resolved]
  - Nasopharyngitis [Recovered/Resolved]
  - Injection site pain [Not Recovered/Not Resolved]
  - Injection site bruising [Not Recovered/Not Resolved]
  - Device malfunction [Unknown]
  - Incorrect dose administered [Unknown]
